FAERS Safety Report 16530167 (Version 1)
Quarter: 2019Q3

REPORT INFORMATION
  Report Type: Spontaneous
  Country: US (occurrence: US)
  Receive Date: 20190523
  Receipt Date: 20190523
  Transmission Date: 20191004
  Serious: Yes (Life-Threatening, Hospitalization)
  Sender: FDA-Public Use
  Company Number: None

PATIENT
  Age: 71 Year
  Sex: Male

DRUGS (2)
  1. CLOPIDOGREL [Suspect]
     Active Substance: CLOPIDOGREL BISULFATE
     Dates: start: 20180914
  2. WARFARIN [Suspect]
     Active Substance: WARFARIN
     Dates: start: 20181223, end: 20190510

REACTIONS (9)
  - Gastric haemorrhage [None]
  - Platelet transfusion [None]
  - Packed red blood cell transfusion [None]
  - Shock haemorrhagic [None]
  - International normalised ratio increased [None]
  - Anaemia [None]
  - Acute kidney injury [None]
  - Transfusion [None]
  - Pulse absent [None]

NARRATIVE: CASE EVENT DATE: 20190306
